FAERS Safety Report 7339038-3 (Version None)
Quarter: 2011Q1

REPORT INFORMATION
  Report Type: 
  Country: None (occurrence: None)
  Receive Date: 20110308
  Receipt Date: 20110223
  Transmission Date: 20110831
  Serious: Yes (Hospitalization)
  Sender: FDA-Public Use
  Company Number: FR-ELI_LILLY_AND_COMPANY-FR201102007370

PATIENT
  Age: 34 Year
  Sex: Female

DRUGS (11)
  1. RIVOTRIL [Concomitant]
     Indication: ANXIETY
     Dosage: UNK, UNKNOWN
  2. SKENAN [Concomitant]
     Indication: PAIN
     Dosage: UNK, UNKNOWN
     Route: 048
  3. RIVOTRIL [Concomitant]
     Dosage: 20 GTT, EACH EVENING
  4. IMOVANE [Concomitant]
     Indication: INSOMNIA
     Dosage: 1 D/F, DAILY (1/D)
     Route: 048
     Dates: end: 20081017
  5. RIVOTRIL [Concomitant]
     Dosage: 5 GTT, 2/D
     Route: 048
  6. CYMBALTA [Suspect]
     Indication: DEPRESSION
     Dosage: 1 D/F, DAILY (1/D)
     Route: 048
  7. SKENAN [Concomitant]
     Dosage: 30 MG, EACH MORNING
  8. STILNOX [Concomitant]
     Dosage: 10 MG, DAILY (1/D)
     Route: 048
     Dates: end: 20081017
  9. LEXOMIL [Concomitant]
     Indication: ANXIETY
     Route: 048
     Dates: end: 20081017
  10. CYMBALTA [Suspect]
     Dosage: 60 MG, EACH EVENING
  11. SKENAN [Concomitant]
     Dosage: 20 MG, EACH EVENING

REACTIONS (1)
  - DEPENDENCE [None]
